FAERS Safety Report 18763046 (Version 1)
Quarter: 2021Q1

REPORT INFORMATION
  Report Type: Spontaneous
  Country: MG (occurrence: MG)
  Receive Date: 20210120
  Receipt Date: 20210120
  Transmission Date: 20210419
  Serious: Yes (Hospitalization, Disabling, Other)
  Sender: FDA-Public Use
  Company Number: MG-AMNEAL PHARMACEUTICALS-2021-AMRX-00136

PATIENT
  Age: 7 Year
  Sex: Male
  Weight: 40 kg

DRUGS (2)
  1. DICLOFENAC SODIUM. [Suspect]
     Active Substance: DICLOFENAC SODIUM
     Indication: PROCEDURAL COMPLICATION
     Dosage: UNK
     Route: 030
     Dates: start: 20180915, end: 20180915
  2. BENZATHINE PENICILLIN [Suspect]
     Active Substance: PENICILLIN G BENZATHINE
     Indication: PROCEDURAL COMPLICATION
     Dosage: UNK
     Route: 030
     Dates: start: 20180915, end: 20180915

REACTIONS (3)
  - Embolia cutis medicamentosa [Recovered/Resolved]
  - Monoplegia [Not Recovered/Not Resolved]
  - Compartment syndrome [Recovered/Resolved]

NARRATIVE: CASE EVENT DATE: 20180915
